FAERS Safety Report 23745381 (Version 3)
Quarter: 2024Q2

REPORT INFORMATION
  Report Type: Spontaneous
  Country: JP (occurrence: JP)
  Receive Date: 20240416
  Receipt Date: 20240426
  Transmission Date: 20240716
  Serious: Yes (Other)
  Sender: FDA-Public Use
  Company Number: JP-ABBVIE-5716061

PATIENT
  Age: 64 Year
  Sex: Male

DRUGS (1)
  1. RINVOQ [Suspect]
     Active Substance: UPADACITINIB
     Indication: Dermatitis atopic
     Dosage: FORM STRENGTH: 15 MILLIGRAM
     Route: 048
     Dates: start: 202110, end: 2022

REACTIONS (3)
  - Epstein-Barr virus infection [Recovered/Resolved]
  - Necrotising retinitis [Recovered/Resolved]
  - Infective uveitis [Recovering/Resolving]

NARRATIVE: CASE EVENT DATE: 20221001
